FAERS Safety Report 7148533-1 (Version None)
Quarter: 2010Q4

REPORT INFORMATION
  Report Type: 
  Country: None (occurrence: None)
  Receive Date: 20101209
  Receipt Date: 20101202
  Transmission Date: 20110411
  Serious: Yes (Death)
  Sender: FDA-Public Use
  Company Number: US-BRISTOL-MYERS SQUIBB COMPANY-15419856

PATIENT
  Age: 52 Year
  Sex: Female

DRUGS (2)
  1. IXEMPRA KIT [Suspect]
     Dosage: STARTED 3 WEEKS AGO
     Route: 042
     Dates: start: 20101101
  2. NEULASTA [Suspect]
     Dosage: STARTED 2 WEEKS AGO
     Dates: start: 20101101

REACTIONS (1)
  - PULMONARY HYPERTENSION [None]
